FAERS Safety Report 5465113-4 (Version None)
Quarter: 2007Q3

REPORT INFORMATION
  Report Type: 
  Country: None (occurrence: None)
  Receive Date: 20070820
  Receipt Date: 20070718
  Transmission Date: 20080115
  Serious: No
  Sender: FDA-Public Use
  Company Number: TPA2007A01393

PATIENT
  Age: 43 Year
  Sex: Female
  Weight: 90.7194 kg

DRUGS (5)
  1. ROZEREM [Suspect]
     Indication: INSOMNIA
     Dosage: 8 MG, HS, PER ORAL
     Route: 048
     Dates: start: 20070617
  2. LIRBRIUM (CHLORDIAZEPOXIDE HYDROCHLORIDE) [Concomitant]
  3. SOBOXIN (ALL OTHER THERAPEUTIC PRODUCTS) [Concomitant]
  4. CYMBALTA [Concomitant]
  5. BENDARYL (SODIUM CITRATE, MENTHOL, DIPHENYDRMAINE HYDROCHLORIDE, AMMON [Concomitant]

REACTIONS (1)
  - DRUG INEFFECTIVE [None]
